FAERS Safety Report 14350500 (Version 1)
Quarter: 2018Q1

REPORT INFORMATION
  Report Type: Spontaneous
  Country: FR (occurrence: FR)
  Receive Date: 20180104
  Receipt Date: 20180104
  Transmission Date: 20180509
  Serious: Yes (Disabling)
  Sender: FDA-Public Use
  Company Number: FR-BAYER-2017-251703

PATIENT
  Age: 32 Year
  Sex: Female

DRUGS (3)
  1. EBASTINE [Suspect]
     Active Substance: EBASTINE
     Route: 048
  2. NASACORT [Concomitant]
     Active Substance: TRIAMCINOLONE ACETONIDE
     Route: 045
  3. CLARITINE 10 MG [Suspect]
     Active Substance: LORATADINE
     Route: 048

REACTIONS (1)
  - Tricuspid valve incompetence [Not Recovered/Not Resolved]

NARRATIVE: CASE EVENT DATE: 2016
